FAERS Safety Report 6670994-2 (Version None)
Quarter: 2010Q2

REPORT INFORMATION
  Report Type: 
  Country: None (occurrence: None)
  Receive Date: 20100406
  Receipt Date: 20100406
  Transmission Date: 20101027
  Serious: Yes (Life-Threatening, Hospitalization, Disabling)
  Sender: FDA-Public Use
  Company Number: None

PATIENT
  Sex: Female
  Weight: 58.514 kg

DRUGS (1)
  1. METOCLOPRAMIDE INJECTION [Suspect]
     Indication: GASTRIC DISORDER
     Dosage: 10 MG   6
     Dates: start: 20050301

REACTIONS (2)
  - GASTRIC INFECTION [None]
  - MOVEMENT DISORDER [None]
